FAERS Safety Report 9554050 (Version 1)
Quarter: 2013Q3

REPORT INFORMATION
  Report Type: Spontaneous
  Country: GB (occurrence: GB)
  Receive Date: 20130925
  Receipt Date: 20130925
  Transmission Date: 20140515
  Serious: Yes (Other)
  Sender: FDA-Public Use
  Company Number: GB-ACTAVIS-2013-16799

PATIENT
  Sex: Male

DRUGS (1)
  1. BICALUTAMIDE (UNKNOWN) [Suspect]
     Indication: PROSTATE CANCER
     Dosage: 50 MG, UNKNOWN
     Route: 065
     Dates: end: 20130823

REACTIONS (1)
  - Electrocardiogram QT prolonged [Recovering/Resolving]
